FAERS Safety Report 17459863 (Version 4)
Quarter: 2020Q2

REPORT INFORMATION
  Report Type: Spontaneous
  Country: US (occurrence: US)
  Receive Date: 20200226
  Receipt Date: 20200615
  Transmission Date: 20200713
  Serious: Yes (Other)
  Sender: FDA-Public Use
  Company Number: US-SA-2020SA049329

PATIENT

DRUGS (1)
  1. CAPRELSA [Suspect]
     Active Substance: VANDETANIB
     Indication: THYROID CANCER
     Dosage: 300 MG, QD
     Route: 048
     Dates: start: 20191230

REACTIONS (5)
  - Bladder cancer [Unknown]
  - Ageusia [Unknown]
  - Anosmia [Unknown]
  - Sinusitis [Unknown]
  - Blood calcium decreased [Unknown]
